FAERS Safety Report 9477875 (Version 1)
Quarter: 2013Q3

REPORT INFORMATION
  Report Type: Spontaneous
  Country: US (occurrence: US)
  Receive Date: 20130827
  Receipt Date: 20130827
  Transmission Date: 20140515
  Serious: Yes (Hospitalization)
  Sender: FDA-Public Use
  Company Number: US-RANBAXY-2013US-72547

PATIENT
  Age: 23 Year
  Sex: Male

DRUGS (11)
  1. FLUOXETINE [Suspect]
     Indication: DEPRESSION
     Dosage: UNK
     Route: 065
  2. FLUOXETINE [Interacting]
     Indication: ANXIETY
  3. FENTANYL [Interacting]
     Indication: GENERAL ANAESTHESIA
     Dosage: 25 UG SINGLE DOSE
     Route: 065
  4. REMIFENTANIL [Interacting]
     Indication: GENERAL ANAESTHESIA
     Dosage: 0.2 UG/KG/MIN
     Route: 040
  5. REMIFENTANIL [Interacting]
     Dosage: BOLUS OF 100 UCG
     Route: 040
  6. PROPOFOL [Suspect]
     Indication: GENERAL ANAESTHESIA
     Route: 040
  7. DIAZEPAM [Concomitant]
     Indication: DEPRESSION
     Route: 065
  8. DIAZEPAM [Concomitant]
     Indication: ANXIETY
  9. MIDAZOLAM [Concomitant]
     Indication: PRODUCT USED FOR UNKNOWN INDICATION
     Route: 065
  10. BUPIVACAINE [Concomitant]
     Indication: PRODUCT USED FOR UNKNOWN INDICATION
     Route: 065
  11. EPINEPHRINE [Concomitant]
     Indication: PRODUCT USED FOR UNKNOWN INDICATION
     Route: 065

REACTIONS (2)
  - Serotonin syndrome [Recovered/Resolved]
  - Drug interaction [Recovered/Resolved]
